FAERS Safety Report 23851123 (Version 3)
Quarter: 2024Q3

REPORT INFORMATION
  Report Type: Spontaneous
  Country: JP (occurrence: JP)
  Receive Date: 20240514
  Receipt Date: 20240710
  Transmission Date: 20241017
  Serious: Yes (Other)
  Sender: SANOFI AVENTIS
  Company Number: JP-SA-2024SA141289

PATIENT
  Age: 34 Year
  Sex: Female

DRUGS (27)
  1. ALEMTUZUMAB [Suspect]
     Active Substance: ALEMTUZUMAB
     Indication: T-cell prolymphocytic leukaemia
     Dosage: UNK, 11 TIMES FROM DAY -39 TO -21
     Route: 041
     Dates: start: 2021, end: 2021
  2. PREDNISOLONE [Suspect]
     Active Substance: PREDNISOLONE
     Indication: Chronic graft versus host disease
     Dosage: 0.5 MG/KG
     Dates: start: 2022
  3. PREDNISOLONE [Suspect]
     Active Substance: PREDNISOLONE
     Dosage: 20 MG
     Route: 065
     Dates: start: 2022
  4. PREDNISOLONE [Suspect]
     Active Substance: PREDNISOLONE
     Dosage: 15 MG
     Dates: start: 2022
  5. PREDNISOLONE [Suspect]
     Active Substance: PREDNISOLONE
     Dosage: 12 MG
     Dates: start: 2022
  6. PREDNISOLONE [Suspect]
     Active Substance: PREDNISOLONE
     Dosage: 10 MG
     Dates: start: 2022
  7. PREDNISOLONE [Suspect]
     Active Substance: PREDNISOLONE
     Dosage: 9 MG
     Dates: start: 2022
  8. PREDNISOLONE [Suspect]
     Active Substance: PREDNISOLONE
     Dosage: 15 MG
     Dates: start: 2022
  9. PREDNISOLONE [Suspect]
     Active Substance: PREDNISOLONE
     Dosage: 14 MG (MODERATE DOSE)
     Dates: start: 2022
  10. PREDNISOLONE [Suspect]
     Active Substance: PREDNISOLONE
     Dosage: 13 MG (MODERATE DOSE)
     Dates: start: 2022
  11. PREDNISOLONE [Suspect]
     Active Substance: PREDNISOLONE
     Dosage: 15 MG
     Dates: start: 2022
  12. PREDNISOLONE [Suspect]
     Active Substance: PREDNISOLONE
     Dosage: 14 MG (MODERATE DOSE)
     Dates: start: 2022
  13. CYCLOPHOSPHAMIDE [Suspect]
     Active Substance: CYCLOPHOSPHAMIDE
     Indication: T-cell prolymphocytic leukaemia
     Dosage: UNK
     Dates: start: 202108, end: 2021
  14. CYCLOPHOSPHAMIDE [Suspect]
     Active Substance: CYCLOPHOSPHAMIDE
     Dosage: 60 MG/KG (DAY -4 AND -3)
  15. PREDNISONE [Suspect]
     Active Substance: PREDNISONE
     Indication: T-cell prolymphocytic leukaemia
     Dosage: UNK
     Route: 048
     Dates: start: 202108, end: 2021
  16. DOXORUBICIN [Suspect]
     Active Substance: DOXORUBICIN
     Indication: T-cell prolymphocytic leukaemia
     Dosage: UNK
     Dates: start: 202108, end: 2021
  17. VINCRISTINE [Suspect]
     Active Substance: VINCRISTINE
     Indication: T-cell prolymphocytic leukaemia
     Dosage: UNK
     Dates: start: 202108, end: 2021
  18. CYTARABINE [Suspect]
     Active Substance: CYTARABINE
     Indication: Bone marrow conditioning regimen
     Dosage: 2 G/M2, (DAY -6 AND -5)
  19. TACROLIMUS [Suspect]
     Active Substance: TACROLIMUS
     Indication: Prophylaxis against graft versus host disease
     Dosage: UNK
     Route: 042
  20. TACROLIMUS [Suspect]
     Active Substance: TACROLIMUS
     Dosage: 0.8 MG
     Route: 048
  21. TACROLIMUS [Suspect]
     Active Substance: TACROLIMUS
     Dosage: 0.4 MG
     Route: 048
  22. METHOTREXATE [Suspect]
     Active Substance: METHOTREXATE
     Indication: Prophylaxis against graft versus host disease
     Dosage: 15 MG/M2, SHORT-TERM
  23. METHOTREXATE [Suspect]
     Active Substance: METHOTREXATE
     Dosage: 10 MG/M2, SHORT-TERM
     Dates: start: 202201, end: 2022
  24. ACYCLOVIR [Concomitant]
     Active Substance: ACYCLOVIR
     Indication: Antiviral prophylaxis
     Dosage: 1000 MG, QD [DAY -7 TO DAY 35]
     Route: 048
  25. ACYCLOVIR [Concomitant]
     Active Substance: ACYCLOVIR
     Indication: Angular cheilitis
     Dosage: 200 MG, QD
     Route: 048
  26. ACYCLOVIR [Concomitant]
     Active Substance: ACYCLOVIR
     Dosage: UNK, DOSE ESCALATION
  27. LETERMOVIR [Concomitant]
     Active Substance: LETERMOVIR
     Indication: Antiviral prophylaxis
     Dosage: UNK, (DAY 6-97)

REACTIONS (8)
  - Renal impairment [Unknown]
  - Rebound effect [Unknown]
  - Angular cheilitis [Recovering/Resolving]
  - Herpes simplex [Recovering/Resolving]
  - Tongue erosion [Recovering/Resolving]
  - Nasal mucosal erosion [Recovering/Resolving]
  - Pain [Recovering/Resolving]
  - Cytomegalovirus infection [Recovered/Resolved]

NARRATIVE: CASE EVENT DATE: 20220101
